FAERS Safety Report 5855686-1 (Version None)
Quarter: 2008Q3

REPORT INFORMATION
  Report Type: 
  Country: None (occurrence: None)
  Receive Date: 20080824
  Receipt Date: 20080811
  Transmission Date: 20090109
  Serious: Yes (Other)
  Sender: FDA-Public Use
  Company Number: GB-BAUSCH-2008BL003491

PATIENT
  Age: 58 Year
  Sex: Female

DRUGS (2)
  1. PHENYLEPHRINE HYDROCHLORIDE [Suspect]
     Indication: ANAESTHESIA
     Route: 045
     Dates: start: 20080709
  2. LIDOCAINE HYDROCHLORIDE [Suspect]
     Indication: ANAESTHESIA
     Route: 045
     Dates: start: 20080709

REACTIONS (2)
  - BLISTER [None]
  - TONGUE BLISTERING [None]
